FAERS Safety Report 17997498 (Version 2)
Quarter: 2020Q3

REPORT INFORMATION
  Report Type: Report from Study
  Country: DE (occurrence: DE)
  Receive Date: 20200708
  Receipt Date: 20200810
  Transmission Date: 20201103
  Serious: Yes (Other)
  Sender: FDA-Public Use
  Company Number: NVSC2020DE190425

PATIENT
  Sex: Male

DRUGS (2)
  1. TRAMETINIB [Suspect]
     Active Substance: TRAMETINIB
     Indication: MALIGNANT MELANOMA
     Dosage: 2 MG
     Route: 065
     Dates: start: 20190701, end: 20200501
  2. DABRAFENIB [Suspect]
     Active Substance: DABRAFENIB
     Indication: MALIGNANT MELANOMA
     Dosage: 300 MG
     Route: 065
     Dates: start: 20190701, end: 20200501

REACTIONS (1)
  - Second primary malignancy [Recovered/Resolved]

NARRATIVE: CASE EVENT DATE: 20200603
